FAERS Safety Report 8007254-3 (Version None)
Quarter: 2011Q4

REPORT INFORMATION
  Report Type: 
  Country: None (occurrence: None)
  Receive Date: 20111123
  Receipt Date: 20110825
  Transmission Date: 20120403
  Serious: No
  Sender: FDA-Public Use
  Company Number: 330561

PATIENT
  Age: 54 Year
  Sex: Female

DRUGS (4)
  1. VICTOZA [Suspect]
     Indication: TYPE 2 DIABETES MELLITUS
     Dosage: 0.6 MG, SINGLE, SUBCUTANEOUS, 1.2 MG, SINGLE, SUBCUTANEOUS, 0.6 MG, QD, SUBCUTANEOUS ,1.2 MG, QD, SU
     Route: 058
     Dates: start: 20110619
  2. VICTOZA [Suspect]
     Indication: TYPE 2 DIABETES MELLITUS
     Dosage: 0.6 MG, SINGLE, SUBCUTANEOUS, 1.2 MG, SINGLE, SUBCUTANEOUS, 0.6 MG, QD, SUBCUTANEOUS ,1.2 MG, QD, SU
     Route: 058
     Dates: start: 20110613, end: 20110618
  3. VICTOZA [Suspect]
     Indication: TYPE 2 DIABETES MELLITUS
     Dosage: 0.6 MG, SINGLE, SUBCUTANEOUS, 1.2 MG, SINGLE, SUBCUTANEOUS, 0.6 MG, QD, SUBCUTANEOUS ,1.2 MG, QD, SU
     Route: 058
     Dates: start: 20110501, end: 20110501
  4. GLIPIZIDE [Concomitant]

REACTIONS (5)
  - BLOOD GLUCOSE DECREASED [None]
  - BLOOD GLUCOSE INCREASED [None]
  - HYPERHIDROSIS [None]
  - ASTHENIA [None]
  - INCORRECT DOSE ADMINISTERED [None]
